FAERS Safety Report 5451578-0 (Version None)
Quarter: 2007Q3

REPORT INFORMATION
  Report Type: 
  Country: None (occurrence: None)
  Receive Date: 20070913
  Receipt Date: 20070904
  Transmission Date: 20080115
  Serious: Yes (Other)
  Sender: FDA-Public Use
  Company Number: US-SHR-US-2007-014924

PATIENT
  Age: 53 Year
  Sex: Male
  Weight: 95.238 kg

DRUGS (7)
  1. BETASERON [Suspect]
     Indication: SECONDARY PROGRESSIVE MULTIPLE SCLEROSIS
     Dosage: 8 MIU, EVERY 2D
     Route: 058
     Dates: start: 20050101, end: 20070401
  2. BETASERON [Suspect]
     Dosage: 8 MIU, EVERY 2D
     Route: 058
     Dates: start: 20070701
  3. AMITRIPTYLINE HCL [Concomitant]
     Dosage: 75 MG, 1X/DAY
     Route: 048
     Dates: start: 20040101
  4. ALBUTEROL [Concomitant]
     Indication: ASTHMA
     Dosage: UNK, AS REQ'D
     Route: 055
  5. MONTELUKAST SODIUM [Concomitant]
     Indication: ASTHMA
     Dosage: UNK, 1X/DAY
  6. ^MONTEMETHOSONE^ [Concomitant]
  7. ATROVENT [Concomitant]
     Indication: ASTHMA
     Dosage: UNK, AS REQ'D

REACTIONS (3)
  - ASPIRATION [None]
  - INFECTION IN AN IMMUNOCOMPROMISED HOST [None]
  - LUNG INFECTION [None]
